FAERS Safety Report 23514730 (Version 1)
Quarter: 2024Q1

REPORT INFORMATION
  Report Type: Spontaneous
  Country: US (occurrence: US)
  Receive Date: 20240212
  Receipt Date: 20240212
  Transmission Date: 20240410
  Serious: No
  Sender: FDA-Public Use
  Company Number: US-JNJFOC-20240135325

PATIENT
  Age: 26 Year
  Sex: Female

DRUGS (3)
  1. IMODIUM A-D [Suspect]
     Active Substance: LOPERAMIDE HYDROCHLORIDE
     Indication: Diarrhoea
     Dosage: 30ML AFTER FIRST LOOSE BM AND 15 ML AFTER SUBSEQUENT LOOSE BM^S
     Route: 065
     Dates: start: 202311
  2. DAYBUE [Concomitant]
     Active Substance: TROFINETIDE
     Indication: Rett syndrome
     Route: 050
  3. SENOKOT [Concomitant]
     Active Substance: SENNOSIDES
     Indication: Constipation

REACTIONS (1)
  - Diarrhoea [Not Recovered/Not Resolved]

NARRATIVE: CASE EVENT DATE: 20231128
